FAERS Safety Report 16168408 (Version 1)
Quarter: 2019Q2

REPORT INFORMATION
  Report Type: Spontaneous
  Country: US (occurrence: US)
  Receive Date: 20190405
  Receipt Date: 20190405
  Transmission Date: 20190711
  Serious: Yes (Hospitalization, Disabling, Other)
  Sender: FDA-Public Use
  Company Number: None

PATIENT
  Age: 54 Year
  Sex: Female
  Weight: 100.35 kg

DRUGS (2)
  1. LOSARTAN POTASSIUM 50 MG TAB [Suspect]
     Active Substance: LOSARTAN POTASSIUM
     Indication: HYPERTENSION
     Dosage: QUANTITY:30 TABLET(S); AT BEDTIME?
     Route: 048
     Dates: start: 20160106, end: 20190319
  2. HYDROCHLOROTHIAZIDE\LOSARTAN POTASSIUM [Suspect]
     Active Substance: HYDROCHLOROTHIAZIDE\LOSARTAN POTASSIUM

REACTIONS (4)
  - Hypoaesthesia [None]
  - Headache [None]
  - Vomiting [None]
  - Epistaxis [None]

NARRATIVE: CASE EVENT DATE: 20190218
